FAERS Safety Report 9517734 (Version 2)
Quarter: 2013Q4

REPORT INFORMATION
  Report Type: Spontaneous
  Country: US (occurrence: US)
  Receive Date: 20130912
  Receipt Date: 20131001
  Transmission Date: 20140711
  Serious: No
  Sender: FDA-Public Use
  Company Number: US-BIOGENIDEC-2013BI085710

PATIENT
  Age: 48 Year
  Sex: Female

DRUGS (6)
  1. AVONEX [Suspect]
     Indication: MULTIPLE SCLEROSIS
     Route: 030
     Dates: start: 19990901
  2. AVONEX [Suspect]
     Indication: MULTIPLE SCLEROSIS
     Route: 030
     Dates: end: 20130705
  3. AVONEX [Suspect]
     Indication: MULTIPLE SCLEROSIS
     Route: 030
     Dates: start: 20130907
  4. TYSABRI [Concomitant]
     Indication: MULTIPLE SCLEROSIS
     Route: 042
     Dates: start: 20130708, end: 20130805
  5. AMPYRA [Concomitant]
     Indication: GAIT DISTURBANCE
     Dates: start: 20130517, end: 20130721
  6. CIPRO [Concomitant]
     Indication: CYSTITIS

REACTIONS (14)
  - Cystitis [Recovered/Resolved]
  - Amnesia [Not Recovered/Not Resolved]
  - Nerve injury [Not Recovered/Not Resolved]
  - Osteonecrosis [Not Recovered/Not Resolved]
  - Cyst [Recovered/Resolved]
  - Fall [Recovered/Resolved]
  - Nerve compression [Recovered/Resolved]
  - Fractured sacrum [Recovered/Resolved]
  - Drug eruption [Recovered/Resolved]
  - Swelling face [Recovered/Resolved]
  - Intervertebral disc protrusion [Recovered/Resolved]
  - Nerve root compression [Recovered/Resolved]
  - Urinary tract infection [Recovered/Resolved]
  - Influenza like illness [Recovered/Resolved]
